FAERS Safety Report 13405799 (Version 1)
Quarter: 2017Q2

REPORT INFORMATION
  Report Type: Spontaneous
  Country: US (occurrence: US)
  Receive Date: 20170405
  Receipt Date: 20170405
  Transmission Date: 20170830
  Serious: No
  Sender: FDA-Public Use
  Company Number: US-PFIZER INC-2017146875

PATIENT
  Age: 40 Year
  Sex: Female
  Weight: 69.4 kg

DRUGS (1)
  1. IBRANCE [Suspect]
     Active Substance: PALBOCICLIB
     Indication: NEOPLASM MALIGNANT
     Dosage: 125 MG, CYCLIC (125MG ONE TABLET A DAY FOR 21 DAY THEN OFF)
     Route: 048

REACTIONS (1)
  - Bone pain [Not Recovered/Not Resolved]
